FAERS Safety Report 6013515-X (Version None)
Quarter: 2008Q4

REPORT INFORMATION
  Report Type: 
  Country: None (occurrence: None)
  Receive Date: 20081219
  Receipt Date: 20081209
  Transmission Date: 20090506
  Serious: Yes (Hospitalization, Other)
  Sender: FDA-Public Use
  Company Number: PHHY2008BR31233

PATIENT
  Sex: Female
  Weight: 65 kg

DRUGS (4)
  1. TRILEPTAL [Suspect]
     Indication: CONVULSION
     Dosage: 300 MG, 1 TABLET DAILY
     Route: 048
     Dates: start: 20081019
  2. TRILEPTAL [Suspect]
     Dosage: 300 MG, 3 TABLETS DAILY
     Route: 048
     Dates: start: 20081024
  3. TRILEPTAL [Suspect]
     Dosage: 300 MG, 4 TABLETS DAILY
     Route: 048
  4. FRISIUM [Concomitant]
     Dosage: 0.5 DF, BID
     Route: 048

REACTIONS (6)
  - AURA [None]
  - BLOOD PRESSURE ABNORMAL [None]
  - BRAIN NEOPLASM [None]
  - BRAIN TUMOUR OPERATION [None]
  - MALAISE [None]
  - WEIGHT INCREASED [None]
